FAERS Safety Report 9661245 (Version 1)
Quarter: 2013Q4

REPORT INFORMATION
  Report Type: Spontaneous
  Country: US (occurrence: None)
  Receive Date: 20131030
  Receipt Date: 20131030
  Transmission Date: 20140711
  Serious: Yes (Hospitalization, Other)
  Sender: FDA-Public Use
  Company Number: ACO_39157_2013

PATIENT
  Age: 24 Year
  Sex: Male
  Weight: 83.9 kg

DRUGS (5)
  1. AMPYRA (DALFAMPRIDINE) TABLET, 10MG [Suspect]
     Indication: GAIT DISTURBANCE
     Route: 048
     Dates: start: 20131009, end: 20131009
  2. GABAPENTIN (GABAPENTIN) [Concomitant]
  3. BACLOFEN (BACLOFEN) [Concomitant]
  4. TIZANIDINE (TIZANIDINE HYDROCHLORIDE) [Concomitant]
  5. TYSABRI (NATALIZUMAB) [Concomitant]

REACTIONS (3)
  - Convulsion [None]
  - Brain abscess [None]
  - Memory impairment [None]
